FAERS Safety Report 19857568 (Version 2)
Quarter: 2021Q4

REPORT INFORMATION
  Report Type: Spontaneous
  Country: TR (occurrence: TR)
  Receive Date: 20210921
  Receipt Date: 20211007
  Transmission Date: 20220304
  Serious: Yes (Other)
  Sender: FDA-Public Use
  Company Number: TR-LUPIN PHARMACEUTICALS INC.-2021-17713

PATIENT
  Age: 68 Year
  Sex: Male

DRUGS (2)
  1. TRIAMCINOLONE [Suspect]
     Active Substance: TRIAMCINOLONE
     Indication: Epicondylitis
     Dosage: UNK (1CC INJECTION GIVEN INTO HIS ELBOW LATERAL EPICONDYLE TENDON ATTACHMENT SITE)
     Route: 065
  2. PRILOCAINE HYDROCHLORIDE [Suspect]
     Active Substance: PRILOCAINE HYDROCHLORIDE
     Indication: Epicondylitis
     Dosage: UNK 0.5CC INJECTION GIVEN INTO HIS ELBOW LATERAL EPICONDYLE TENDON ATTACHMENT SITE
     Route: 065

REACTIONS (1)
  - Radial nerve palsy [Recovered/Resolved]
